FAERS Safety Report 5378577-1 (Version None)
Quarter: 2007Q3

REPORT INFORMATION
  Report Type: 
  Country: None (occurrence: None)
  Receive Date: 20070702
  Receipt Date: 20070702
  Transmission Date: 20080115
  Serious: Yes (Life-Threatening, Hospitalization, Other)
  Sender: FDA-Public Use
  Company Number: None

PATIENT
  Age: 79 Year
  Sex: Female
  Weight: 75.2971 kg

DRUGS (8)
  1. BONIVA [Suspect]
     Indication: OSTEOPOROSIS
     Dosage: 150 MG MONTHLY PO
     Route: 048
     Dates: start: 20070115, end: 20070516
  2. FOUR VECTORS OF ANTIHYPERTENSIVE THERAPY [Concomitant]
  3. BETA BLOCKER [Concomitant]
  4. ACE INHIBITION [Concomitant]
  5. CLONIDINE [Concomitant]
  6. THIAZIDE [Concomitant]
  7. CARBONIC ANHYDRASE INHIBITOR [Concomitant]
  8. EYE DROPS [Concomitant]

REACTIONS (12)
  - ABDOMINAL PAIN [None]
  - BACK PAIN [None]
  - BONE PAIN [None]
  - DEHYDRATION [None]
  - FLUID INTAKE REDUCED [None]
  - LOSS OF CONSCIOUSNESS [None]
  - MYALGIA [None]
  - ORAL INTAKE REDUCED [None]
  - PAIN IN EXTREMITY [None]
  - RENAL FAILURE ACUTE [None]
  - RESPIRATORY ACIDOSIS [None]
  - URINARY TRACT INFECTION [None]
